FAERS Safety Report 7283795-1 (Version None)
Quarter: 2011Q1

REPORT INFORMATION
  Report Type: 
  Country: None (occurrence: None)
  Receive Date: 20110209
  Receipt Date: 20110202
  Transmission Date: 20110831
  Serious: Yes (Hospitalization)
  Sender: FDA-Public Use
  Company Number: FR-MERCK-1102FRA00038

PATIENT
  Age: 76 Year
  Sex: Female

DRUGS (10)
  1. DILTIAZEM HYDROCHLORIDE [Concomitant]
     Route: 048
  2. INSULIN GLARGINE [Concomitant]
     Route: 058
     Dates: start: 20100922, end: 20101224
  3. GLICLAZIDE [Concomitant]
     Indication: TYPE 2 DIABETES MELLITUS
     Route: 048
     Dates: start: 20100408, end: 20101224
  4. FOSINOPRIL SODIUM AND HYDROCHLOROTHIAZIDE [Concomitant]
     Route: 048
  5. JANUMET [Suspect]
     Indication: TYPE 2 DIABETES MELLITUS
     Route: 048
     Dates: start: 20091215, end: 20101224
  6. INSULIN GLARGINE [Concomitant]
     Route: 058
     Dates: start: 20100408, end: 20100728
  7. INSULIN GLARGINE [Concomitant]
     Route: 058
     Dates: start: 20100729, end: 20100921
  8. INSULIN GLARGINE [Concomitant]
     Route: 058
     Dates: start: 20101225
  9. INSULIN GLARGINE [Concomitant]
     Indication: TYPE 2 DIABETES MELLITUS
     Route: 058
     Dates: end: 20100407
  10. BISOPROLOL FUMARATE [Concomitant]
     Route: 048

REACTIONS (6)
  - HYPOGLYCAEMIA [None]
  - CARDIAC FAILURE [None]
  - WEIGHT DECREASED [None]
  - ATRIAL FIBRILLATION [None]
  - METASTASES TO PERITONEUM [None]
  - ANURIA [None]
